FAERS Safety Report 15037489 (Version 1)
Quarter: 2018Q2

REPORT INFORMATION
  Report Type: Spontaneous
  Country: DE (occurrence: DE)
  Receive Date: 20180620
  Receipt Date: 20180620
  Transmission Date: 20180711
  Serious: Yes (Hospitalization)
  Sender: FDA-Public Use
  Company Number: DE-TEVA-2018-DE-909290

PATIENT
  Age: 91 Year
  Sex: Female

DRUGS (3)
  1. KEPPRA [Suspect]
     Active Substance: LEVETIRACETAM
     Route: 065
  2. ACETYLSALICYLSAEURE [Concomitant]
     Active Substance: ASPIRIN
  3. TORASEMIDE [Suspect]
     Active Substance: TORSEMIDE
     Route: 065

REACTIONS (4)
  - Confusional state [Unknown]
  - Dehydration [Unknown]
  - Drug prescribing error [Unknown]
  - Hallucination, visual [Unknown]
